FAERS Safety Report 4679645-X (Version None)
Quarter: 2005Q2

REPORT INFORMATION
  Report Type: 
  Country: None (occurrence: None)
  Receive Date: 20050602
  Receipt Date: 20050520
  Transmission Date: 20051028
  Serious: Yes (Life-Threatening, Disabling)
  Sender: FDA-Public Use
  Company Number: GBWYE684020MAY05

PATIENT
  Age: 79 Year
  Sex: Female
  Weight: 62 kg

DRUGS (6)
  1. ENBREL [Suspect]
     Indication: RHEUMATOID ARTHRITIS
     Route: 058
     Dates: start: 20040715, end: 20040923
  2. METHOTREXATE [Suspect]
     Route: 048
     Dates: start: 19981021, end: 20040923
  3. METOPROLOL [Concomitant]
     Indication: BLOOD PRESSURE INCREASED
     Dosage: 10.5MG FREQUENCY UNSPECIFIED
     Route: 048
  4. ACETYLSALICYLIC ACID [Concomitant]
     Dosage: 75MG FREQUNECY UNSPECIFIED
     Route: 048
  5. CLOPIDOGREL BISULFATE [Concomitant]
     Dosage: 75MG FREQUENCY UNSPECIFED
     Route: 048
  6. ATORVASTATIN [Concomitant]
     Indication: BLOOD CHOLESTEROL INCREASED
     Dosage: 40MG FREQUENCY UNSPECIFIED
     Route: 048

REACTIONS (3)
  - CONDITION AGGRAVATED [None]
  - MYOCARDIAL INFARCTION [None]
  - PULMONARY FIBROSIS [None]
